FAERS Safety Report 9204137 (Version 1)
Quarter: 2013Q1

REPORT INFORMATION
  Report Type: Spontaneous
  Country: US (occurrence: None)
  Receive Date: 20130329
  Receipt Date: 20130329
  Transmission Date: 20140127
  Serious: Yes (Hospitalization)
  Sender: FDA-Public Use
  Company Number: 2013-105

PATIENT
  Age: 37 Year
  Sex: Male

DRUGS (8)
  1. ZICONOTIDE [Suspect]
     Indication: NEUROPATHY PERIPHERAL
     Dosage: 0.005 MCG, ONCE/HOUR, INTRATHECAL
     Route: 037
  2. BUPIVACAINE HYDROCHLORIDE [Suspect]
     Indication: NEUROPATHY PERIPHERAL
     Dosage: UNK MG, ONCE/HOUR (7.5 MG/ML), INTRATHECAL
     Route: 037
  3. FENTANYL (FENTANYL CITRATE) INJECTION [Concomitant]
  4. DESVENLAFAXINE (DESVENLAFAXINE) [Concomitant]
  5. ALPRAZOLAM (ALPRAZOLAM) [Concomitant]
  6. HYDROMORPHONE HCL (HYDROMORPHONE HYDROCHLORIDE) [Concomitant]
  7. OXYCODONE HYDROCHLORIDE (OXYCODONE HYDROCHLORIDE) [Concomitant]
  8. TIZANIDINE (TIZANIDINE HYDROCHLORIDE) [Concomitant]

REACTIONS (12)
  - Toxicity to various agents [None]
  - Delirium [None]
  - Hyperaesthesia [None]
  - Neuralgia [None]
  - Dysgeusia [None]
  - Pain in extremity [None]
  - Condition aggravated [None]
  - Tremor [None]
  - Decreased appetite [None]
  - Incoherent [None]
  - Blood pressure increased [None]
  - Drug intolerance [None]
